FAERS Safety Report 15898088 (Version 1)
Quarter: 2019Q1

REPORT INFORMATION
  Report Type: Spontaneous
  Country: FR (occurrence: FR)
  Receive Date: 20190201
  Receipt Date: 20190201
  Transmission Date: 20190417
  Serious: Yes (Hospitalization)
  Sender: FDA-Public Use
  Company Number: FR-AUROBINDO-AUR-APL-2019-003796

PATIENT

DRUGS (3)
  1. NEFOPAM HYDROCHLORIDE [Suspect]
     Active Substance: NEFOPAM HYDROCHLORIDE
     Indication: PROCEDURAL PAIN
     Dosage: 20 MILLIGRAM
     Route: 042
     Dates: start: 20181107, end: 20181112
  2. TRAMADOL. [Suspect]
     Active Substance: TRAMADOL
     Indication: PROCEDURAL PAIN
     Dosage: 100 MILLIGRAM
     Route: 042
     Dates: start: 20181107, end: 20181112
  3. ADRENALINE [Suspect]
     Active Substance: EPINEPHRINE
     Indication: PRODUCT USED FOR UNKNOWN INDICATION
     Dosage: 1 MILLIGRAM
     Route: 055
     Dates: start: 20181107, end: 20181107

REACTIONS (1)
  - Pupils unequal [Recovering/Resolving]

NARRATIVE: CASE EVENT DATE: 20181108
